FAERS Safety Report 14669132 (Version 2)
Quarter: 2021Q1

REPORT INFORMATION
  Report Type: Report from Study
  Country: US (occurrence: US)
  Receive Date: 20180322
  Receipt Date: 20210219
  Transmission Date: 20210419
  Serious: Yes (Other)
  Sender: FDA-Public Use
  Company Number: US-EMD SERONO-E2B_90031248

PATIENT
  Sex: Female

DRUGS (2)
  1. REBIF [Suspect]
     Active Substance: INTERFERON BETA-1A
     Route: 058
     Dates: start: 20180312, end: 20180326
  2. REBIF [Suspect]
     Active Substance: INTERFERON BETA-1A
     Indication: MULTIPLE SCLEROSIS
     Dosage: PREVIOUSLY USED REBIDOSE, REBIF PREFILLED SYRINGE.
     Route: 058
     Dates: start: 20070324, end: 20070424

REACTIONS (7)
  - Feeling abnormal [Unknown]
  - Visual impairment [Unknown]
  - Eye disorder [Unknown]
  - Fear of injection [Unknown]
  - Gait disturbance [Unknown]
  - Product administered at inappropriate site [Unknown]
  - Loss of consciousness [Recovered/Resolved]
